FAERS Safety Report 6882886-4 (Version None)
Quarter: 2010Q3

REPORT INFORMATION
  Report Type: 
  Country: None (occurrence: None)
  Receive Date: 20100729
  Receipt Date: 20100719
  Transmission Date: 20110219
  Serious: Yes (Hospitalization)
  Sender: FDA-Public Use
  Company Number: US-ROCHE-717100

PATIENT
  Sex: Female

DRUGS (5)
  1. BEVACIZUMAB [Suspect]
     Indication: OVARIAN CANCER
     Dosage: INDUCTION THERAPY
     Route: 065
  2. BEVACIZUMAB [Suspect]
     Dosage: MAINTAINENCE THERAPY, PATIENT REMOVED FROM THE STUDY
     Route: 065
  3. PACLITAXEL [Suspect]
     Indication: OVARIAN CANCER
     Dosage: INDUCTION THERAPY
     Route: 065
  4. PACLITAXEL [Suspect]
     Dosage: MAINTAINENCE THERAPY, PATIENT REMOVED FROM THE STUDY
     Route: 065
  5. CARBOPLATIN [Suspect]
     Indication: OVARIAN CANCER
     Dosage: PATIENT REMOVED FROM THE STUDY
     Route: 042

REACTIONS (1)
  - INTESTINAL OBSTRUCTION [None]
